FAERS Safety Report 5338182-X (Version None)
Quarter: 2007Q2

REPORT INFORMATION
  Report Type: 
  Country: None (occurrence: None)
  Receive Date: 20070530
  Receipt Date: 20070525
  Transmission Date: 20071010
  Serious: Yes (Hospitalization, Other)
  Sender: FDA-Public Use
  Company Number: GB-BRISTOL-MYERS SQUIBB COMPANY-13726559

PATIENT
  Age: 71 Year
  Sex: Female
  Weight: 65 kg

DRUGS (3)
  1. SINEMET CR [Suspect]
     Indication: TREMOR
     Route: 048
     Dates: start: 20061205
  2. FUROSEMIDE [Concomitant]
     Indication: MYOCARDIAL ISCHAEMIA
     Dates: start: 19961019
  3. ISOSORBIDE MONONITRATE [Concomitant]
     Indication: MYOCARDIAL ISCHAEMIA
     Dates: start: 19961004

REACTIONS (1)
  - PULMONARY EMBOLISM [None]
